FAERS Safety Report 9469381 (Version 2)
Quarter: 2014Q1

REPORT INFORMATION
  Report Type: Report from Study
  Country: US (occurrence: US)
  Receive Date: 20130821
  Receipt Date: 20140313
  Transmission Date: 20141002
  Serious: Yes (Other)
  Sender: FDA-Public Use
  Company Number: US-ROCHE-1264262

PATIENT
  Sex: Female
  Weight: 100.9 kg

DRUGS (11)
  1. XOLAIR [Suspect]
     Indication: ASTHMA
     Route: 058
  2. XOLAIR [Suspect]
     Route: 058
     Dates: start: 20130109
  3. MONTELUKAST [Concomitant]
     Indication: ASTHMA
     Route: 048
  4. MONTELUKAST [Concomitant]
     Route: 048
  5. DULERA [Concomitant]
     Indication: ASTHMA
     Dosage: 200-5 INHALED, 2 SPRAYS TWICE DAILY
     Route: 065
  6. DULERA [Concomitant]
     Route: 065
  7. TRIAMCINOLONE [Concomitant]
     Indication: HYPERSENSITIVITY
     Dosage: 2 SPRAYS EACH NOSTRIL
     Route: 045
  8. VENTOLIN HFA [Concomitant]
     Indication: ASTHMA
     Dosage: 2 PUFFS
     Route: 065
  9. WELLBUTRIN [Concomitant]
     Indication: DEPRESSION
     Route: 048
  10. METFORMIN [Concomitant]
     Indication: DIABETES MELLITUS
     Route: 048
  11. EPIPEN [Concomitant]
     Dosage: 2 PACK, IN CASE OF REACTION TO XOLAIR
     Route: 065

REACTIONS (1)
  - Asthma [Recovered/Resolved]
